FAERS Safety Report 25348496 (Version 2)
Quarter: 2025Q3

REPORT INFORMATION
  Report Type: Report from Study
  Country: JP (occurrence: JP)
  Receive Date: 20250522
  Receipt Date: 20250809
  Transmission Date: 20251021
  Serious: Yes (Hospitalization)
  Sender: ALEXION PHARMACEUTICALS
  Company Number: JP-ASTRAZENECA-240102040_032320_P_1

PATIENT
  Age: 55 Year
  Sex: Female
  Weight: 80 kg

DRUGS (26)
  1. ANIFROLUMAB [Suspect]
     Active Substance: ANIFROLUMAB
     Indication: Systemic lupus erythematosus
     Dates: start: 20230626, end: 20240125
  2. PREDNISOLONE [Suspect]
     Active Substance: PREDNISOLONE
     Indication: Systemic lupus erythematosus
  3. PREDNISOLONE [Suspect]
     Active Substance: PREDNISOLONE
  4. PREDNISOLONE [Suspect]
     Active Substance: PREDNISOLONE
  5. NEXIUM [Concomitant]
     Active Substance: ESOMEPRAZOLE MAGNESIUM
     Indication: Gastrooesophageal reflux disease
  6. PLAQUENIL [Concomitant]
     Active Substance: HYDROXYCHLOROQUINE SULFATE
     Indication: Systemic lupus erythematosus
  7. METHOTREXATE [Concomitant]
     Active Substance: METHOTREXATE
     Indication: Systemic lupus erythematosus
  8. MAGNESIUM OXIDE [Concomitant]
     Active Substance: MAGNESIUM OXIDE
     Indication: Constipation
  9. DULOXETINE [Concomitant]
     Active Substance: DULOXETINE
     Indication: Fibromyalgia
  10. ALFACALCIDOL [Concomitant]
     Active Substance: ALFACALCIDOL
     Indication: Osteoporosis
  11. ROSUVASTATIN CALCIUM [Concomitant]
     Active Substance: ROSUVASTATIN CALCIUM
     Indication: Dyslipidaemia
  12. SENNOSIDES [Concomitant]
     Active Substance: SENNOSIDES
     Indication: Constipation
  13. TRAMADOL HYDROCHLORIDE [Concomitant]
     Active Substance: TRAMADOL HYDROCHLORIDE
     Indication: Pain
  14. DIETARY SUPPLEMENT\PROBIOTICS [Concomitant]
     Active Substance: DIETARY SUPPLEMENT\PROBIOTICS NOS
     Indication: Dysbiosis
  15. DEXTROMETHORPHAN HYDROBROMIDE [Concomitant]
     Active Substance: DEXTROMETHORPHAN HYDROBROMIDE
     Indication: Cough
  16. BEPOTASTINE BESILATE [Concomitant]
     Active Substance: BEPOTASTINE BESILATE
     Indication: Rhinitis allergic
  17. DAYVIGO [Concomitant]
     Active Substance: LEMBOREXANT
     Indication: Insomnia
  18. FOLIC ACID [Concomitant]
     Active Substance: FOLIC ACID
     Indication: Prophylaxis
  19. LOXOPROFEN [Concomitant]
     Active Substance: LOXOPROFEN
     Indication: Pain
  20. ELIQUIS [Concomitant]
     Active Substance: APIXABAN
     Indication: Deep vein thrombosis
  21. TEPRENONE [Concomitant]
     Active Substance: TEPRENONE
     Indication: Chronic gastritis
  22. CELECOXIB [Concomitant]
     Active Substance: CELECOXIB
     Indication: Pain
  23. DOMPERIDONE [Concomitant]
     Active Substance: DOMPERIDONE
     Indication: Nausea
  24. BONALON [Concomitant]
     Active Substance: ALENDRONATE SODIUM
     Indication: Osteoporosis
  25. MIROGABALIN BESYLATE [Concomitant]
     Active Substance: MIROGABALIN BESYLATE
     Indication: Pain
  26. NORSPAN [Concomitant]
     Active Substance: BUPRENORPHINE
     Indication: Pain

REACTIONS (3)
  - Malaise [Recovered/Resolved]
  - Compression fracture [Recovering/Resolving]
  - Off label use [Unknown]

NARRATIVE: CASE EVENT DATE: 20230802
